FAERS Safety Report 16919711 (Version 1)
Quarter: 2019Q4

REPORT INFORMATION
  Report Type: Spontaneous
  Country: GB (occurrence: GB)
  Receive Date: 20191015
  Receipt Date: 20191015
  Transmission Date: 20200122
  Serious: Yes (Disabling, Other)
  Sender: FDA-Public Use
  Company Number: GB-MYLANLABS-2019M1096238

PATIENT
  Age: 74 Year
  Sex: Male
  Weight: 82 kg

DRUGS (15)
  1. LANSOPRAZOLE. [Concomitant]
     Active Substance: LANSOPRAZOLE
     Dosage: 15 MILLIGRAM, QD
     Dates: start: 20190408, end: 20190603
  2. DHC CONTINUS [Concomitant]
     Active Substance: DIHYDROCODEINE BITARTRATE
     Dosage: 240 MILLIGRAM, QD
     Dates: start: 20190408
  3. AMLODIPINE [Concomitant]
     Active Substance: AMLODIPINE BESYLATE
     Dosage: 10 MILLIGRAM, QD
     Dates: start: 20190408
  4. HYLO TEAR [Concomitant]
     Dosage: AS DIRECTED, PRN
     Route: 047
     Dates: start: 20190408, end: 20190503
  5. ORAMORPH [Concomitant]
     Active Substance: MORPHINE SULFATE
     Dosage: 5-10ML WHEN REQUIRED, 10MG/5ML, PRN
     Route: 048
     Dates: start: 20190408
  6. IBUPROFEN. [Concomitant]
     Active Substance: IBUPROFEN
     Dosage: 600 MILLIGRAM, QD
     Dates: start: 20190408
  7. HYLO TEAR [Concomitant]
     Dosage: AS DIRECTED, PRN
     Route: 031
     Dates: start: 20190408, end: 20190503
  8. SIMVASTATIN. [Concomitant]
     Active Substance: SIMVASTATIN
     Dosage: 40 MILLIGRAM, AT NIGHT, QD
     Dates: start: 20190515
  9. DOXYCYCLINE. [Concomitant]
     Active Substance: DOXYCYCLINE
     Dosage: 100 MILLIGRAM, QD
     Dates: start: 20190403
  10. HYLO-FORTE [Concomitant]
     Active Substance: HYALURONATE SODIUM
     Dosage: PRN (AS DIRECTED)
     Route: 047
     Dates: start: 20190408
  11. DOXYCYCLINE. [Concomitant]
     Active Substance: DOXYCYCLINE
     Dosage: 100 MILLIGRAM, QD
     Dates: start: 20190403
  12. RAMIPRIL. [Suspect]
     Active Substance: RAMIPRIL
     Indication: PRODUCT USED FOR UNKNOWN INDICATION
     Dosage: 5 MILLIGRAM
     Route: 065
  13. DIHYDROCODEINE [Concomitant]
     Active Substance: DIHYDROCODEINE
     Dosage: 240 MILLIGRAM, QD
     Dates: start: 20190408
  14. CALCIPOTRIOL [Concomitant]
     Active Substance: CALCIPOTRIENE
     Dosage: 2 DOSAGE FORM, 50 MICROGRAMS/G, QD
     Dates: start: 20190408, end: 20190603
  15. HYLO-FORTE [Concomitant]
     Active Substance: HYALURONATE SODIUM
     Dosage: PRN (AS DIRECTED)
     Route: 050
     Dates: start: 20190408

REACTIONS (2)
  - Abdominal pain lower [Recovered/Resolved]
  - Suprapubic pain [Recovered/Resolved]

NARRATIVE: CASE EVENT DATE: 20190517
